FAERS Safety Report 23052281 (Version 5)
Quarter: 2025Q1

REPORT INFORMATION
  Report Type: Spontaneous
  Country: US (occurrence: US)
  Receive Date: 20231010
  Receipt Date: 20250221
  Transmission Date: 20250409
  Serious: Yes (Other)
  Sender: AMGEN
  Company Number: US-AMGEN-USASP2023177316

PATIENT
  Age: 75 Year
  Sex: Female

DRUGS (2)
  1. OTEZLA [Suspect]
     Active Substance: APREMILAST
     Indication: Psoriatic arthropathy
     Dosage: 30 MILLIGRAM, BID
     Route: 048
     Dates: start: 20230907
  2. BIOTIN [Concomitant]
     Active Substance: BIOTIN
     Route: 065

REACTIONS (3)
  - Psoriatic arthropathy [Not Recovered/Not Resolved]
  - Glossodynia [Not Recovered/Not Resolved]
  - Diarrhoea [Not Recovered/Not Resolved]

NARRATIVE: CASE EVENT DATE: 20231001
